FAERS Safety Report 9056476 (Version 2)
Quarter: 2013Q1

REPORT INFORMATION
  Report Type: Spontaneous
  Country: FR (occurrence: FR)
  Receive Date: 20130204
  Receipt Date: 20130219
  Transmission Date: 20140127
  Serious: Yes (Hospitalization)
  Sender: FDA-Public Use
  Company Number: FR-PFIZER INC-2013039604

PATIENT
  Age: 59 Year
  Sex: Male

DRUGS (18)
  1. TAZOCILLINE [Suspect]
     Indication: WOUND INFECTION
     Dosage: 4 G, DAILY
     Route: 042
     Dates: start: 20120610, end: 20120726
  2. TIENAM [Suspect]
     Indication: WOUND INFECTION
     Dosage: UNK
     Route: 042
     Dates: start: 20120607, end: 20120610
  3. LYRICA [Concomitant]
     Dosage: 75 MG, 2X/DAY
  4. LYRICA [Concomitant]
     Dosage: 100 MG, 1X/DAY
  5. LASILIX [Concomitant]
     Dosage: 20 MG, 1X/DAY
  6. DIFFU K [Concomitant]
     Dosage: 600 MG, 1X/DAY
  7. KARDEGIC [Concomitant]
     Dosage: 160 MG, 1X/DAY
  8. PARIET [Concomitant]
     Dosage: 10 MG, 1X/DAY
  9. EUPRESSYL [Concomitant]
     Dosage: 60 MG, 2X/DAY
  10. TOPALGIC LP [Concomitant]
     Dosage: 100 MG, 2X/DAY
  11. TOPALGIC [Concomitant]
     Dosage: 50 MG THRICE DAILY AS NEEDED
  12. XATRAL LP [Concomitant]
     Dosage: 10 MG, 1X/DAY
  13. PARACETAMOL [Concomitant]
     Indication: PYREXIA
     Dosage: 1 G THRICE DAILY AS NEEDED
  14. CETIRIZINE [Concomitant]
     Dosage: 10 MG, 1X/DAY
  15. POLARAMINE [Concomitant]
     Dosage: 2 MG, 3X/DAY
  16. LOVENOX [Concomitant]
     Dosage: 0.4, ONE INJECTION DAILY
     Route: 058
  17. LANTUS [Concomitant]
     Dosage: 12 IU, 1X/DAY
  18. HUMALOG [Concomitant]
     Dosage: 6 IU, 3X/DAY

REACTIONS (1)
  - Drug reaction with eosinophilia and systemic symptoms [Recovered/Resolved]
